FAERS Safety Report 14567032 (Version 1)
Quarter: 2018Q1

REPORT INFORMATION
  Report Type: Spontaneous
  Country: US (occurrence: US)
  Receive Date: 20180222
  Receipt Date: 20180222
  Transmission Date: 20180509
  Serious: Yes (Other)
  Sender: FDA-Public Use
  Company Number: None

PATIENT
  Age: 17 Year
  Sex: Male
  Weight: 103.5 kg

DRUGS (2)
  1. EQUATE ORASOL [Suspect]
     Active Substance: BENZOCAINE
     Indication: TOOTHACHE
     Dosage: ?          QUANTITY:1 FINGER TIP;OTHER ROUTE:APPLIED BY FINGER ON THE TOOTH?
     Dates: start: 20180221, end: 20180221
  2. DENTURE ADHESIVE CREAM (DEVICE) [Suspect]
     Active Substance: DEVICE
     Indication: PRODUCT PACKAGING ISSUE
     Dosage: ?          QUANTITY:1 FINGER TIP;OTHER FREQUENCY:1;OTHER ROUTE:APPLIED TO THE TOOTH?
     Dates: start: 20180221, end: 20180221

REACTIONS (2)
  - Product label on wrong product [None]
  - Wrong drug administered [None]

NARRATIVE: CASE EVENT DATE: 20180221
